FAERS Safety Report 18345053 (Version 1)
Quarter: 2020Q4

REPORT INFORMATION
  Report Type: Spontaneous
  Country: US (occurrence: US)
  Receive Date: 20201005
  Receipt Date: 20201005
  Transmission Date: 20210114
  Serious: No
  Sender: FDA-Public Use
  Company Number: US-ALLERGAN-2021258US

PATIENT
  Sex: Female

DRUGS (1)
  1. LINZESS [Suspect]
     Active Substance: LINACLOTIDE
     Indication: PRODUCT USED FOR UNKNOWN INDICATION
     Dosage: 72 ?G, QD
     Route: 048
     Dates: start: 20200506, end: 202006

REACTIONS (3)
  - Product dose omission issue [Unknown]
  - Drug ineffective [Unknown]
  - Product packaging quantity issue [Unknown]
